FAERS Safety Report 8269928-9 (Version None)
Quarter: 2012Q2

REPORT INFORMATION
  Report Type: 
  Country: None (occurrence: None)
  Receive Date: 20120410
  Receipt Date: 20120405
  Transmission Date: 20120825
  Serious: Yes (Other)
  Sender: FDA-Public Use
  Company Number: US-PFIZER INC-2012087157

PATIENT
  Sex: Male
  Weight: 70.295 kg

DRUGS (5)
  1. IMITREX [Concomitant]
     Indication: CLUSTER HEADACHE
     Dosage: UNK
  2. CHANTIX [Suspect]
     Indication: SMOKING CESSATION THERAPY
     Dosage: 0.5 MG, DAILY
     Route: 048
     Dates: start: 20120201, end: 20120101
  3. CHANTIX [Suspect]
     Dosage: 1 MG, 2X/DAY
     Dates: start: 20120101
  4. VALIUM [Concomitant]
     Indication: SLEEP DISORDER
     Dosage: 10 MG, 1X/DAY
  5. FIORINAL W/CODEINE [Concomitant]
     Indication: CLUSTER HEADACHE
     Dosage: UNK

REACTIONS (7)
  - DRUG INEFFECTIVE [None]
  - IRRITABILITY [None]
  - AGITATION [None]
  - DEPRESSION [None]
  - HOSTILITY [None]
  - ANXIETY [None]
  - ALCOHOL USE [None]
